FAERS Safety Report 25943735 (Version 1)
Quarter: 2025Q4

REPORT INFORMATION
  Report Type: Spontaneous
  Country: RS (occurrence: RS)
  Receive Date: 20251021
  Receipt Date: 20251021
  Transmission Date: 20260119
  Serious: Yes (Death, Other)
  Sender: ADMA BIOLOGICS
  Company Number: RS-ADMA BIOLOGICS INC.-RS-2025ADM000340

PATIENT
  Age: 53 Year
  Sex: Female

DRUGS (4)
  1. HUMAN IMMUNOGLOBULIN G [Suspect]
     Active Substance: HUMAN IMMUNOGLOBULIN G
     Indication: Toxic epidermal necrolysis
     Dosage: 2 G/KG OVER 5 DAYS, UNK
     Route: 042
  2. HUMAN IMMUNOGLOBULIN G [Suspect]
     Active Substance: HUMAN IMMUNOGLOBULIN G
     Dosage: 1 GRAM PER KILOGRAM, QD
     Route: 042
  3. DEXAMETHASONE [Suspect]
     Active Substance: DEXAMETHASONE
     Indication: Toxic epidermal necrolysis
     Dosage: 25 MG OVER 2 DAYS, UNK
     Route: 065
  4. DEXAMETHASONE [Suspect]
     Active Substance: DEXAMETHASONE
     Dosage: 100 MG, PULSE THERAPY OVER 3 DAYS, UNK
     Route: 065

REACTIONS (3)
  - Sepsis [Fatal]
  - Renal failure [Fatal]
  - Off label use [Unknown]
